FAERS Safety Report 21165898 (Version 2)
Quarter: 2022Q3

REPORT INFORMATION
  Report Type: Report from Study
  Country: IN (occurrence: IN)
  Receive Date: 20220803
  Receipt Date: 20220809
  Transmission Date: 20221027
  Serious: Yes (Hospitalization, Other)
  Sender: FDA-Public Use
  Company Number: IN-NOVARTISPH-NVSC2022IN173029

PATIENT
  Age: 25 Year
  Sex: Female

DRUGS (1)
  1. CERTICAN [Suspect]
     Active Substance: EVEROLIMUS
     Indication: Liver transplant
     Dosage: 0.5 MG, BID
     Route: 048
     Dates: start: 20190903, end: 20220701

REACTIONS (1)
  - Metastases to central nervous system [Unknown]
